FAERS Safety Report 7481266-0 (Version None)
Quarter: 2011Q2

REPORT INFORMATION
  Report Type: 
  Country: None (occurrence: None)
  Receive Date: 20110505
  Receipt Date: 20110427
  Transmission Date: 20111010
  Serious: Yes (Other)
  Sender: FDA-Public Use
  Company Number: A0917496A

PATIENT
  Age: 73 Year
  Sex: Female

DRUGS (2)
  1. METHYLCELLULOSE (FORMULATION UNKNOWN) SUGAR FREE, ORANGE (METHYLCELLUL [Suspect]
     Indication: CONSTIPATION
  2. METHYLCELLULOSE CAPLET (METHYLCELLULOSE) [Suspect]
     Indication: CONSTIPATION

REACTIONS (5)
  - CHOKING [None]
  - GASTROOESOPHAGEAL SPHINCTER INSUFFICIENCY [None]
  - DYSPNOEA [None]
  - REGURGITATION [None]
  - DYSPHAGIA [None]
